FAERS Safety Report 4839807-5 (Version None)
Quarter: 2005Q4

REPORT INFORMATION
  Report Type: 
  Country: None (occurrence: None)
  Receive Date: 20051129
  Receipt Date: 20050928
  Transmission Date: 20060501
  Serious: No
  Sender: FDA-Public Use
  Company Number: US-GLAXOSMITHKLINE-A0576216A

PATIENT
  Age: 48 Year
  Sex: Female

DRUGS (4)
  1. WELLBUTRIN SR [Suspect]
     Indication: DEPRESSION
     Dosage: 200MG PER DAY
     Route: 048
     Dates: start: 20030101
  2. MELATONIN [Concomitant]
  3. LISINOPRIL [Concomitant]
  4. LABETALOL [Concomitant]

REACTIONS (2)
  - DIZZINESS [None]
  - INSOMNIA [None]
